FAERS Safety Report 4562371-5 (Version None)
Quarter: 2005Q1

REPORT INFORMATION
  Report Type: 
  Country: None (occurrence: None)
  Receive Date: 20050127
  Receipt Date: 20050120
  Transmission Date: 20050727
  Serious: Yes (Other)
  Sender: FDA-Public Use
  Company Number: 200510534GDDC

PATIENT
  Age: 7 Year
  Sex: Female

DRUGS (1)
  1. MINIRIN [Suspect]
     Indication: ENURESIS
     Route: 045
     Dates: start: 20040501

REACTIONS (1)
  - WEIGHT INCREASED [None]
